FAERS Safety Report 10128467 (Version 1)
Quarter: 2014Q2

REPORT INFORMATION
  Report Type: Spontaneous
  Country: US (occurrence: US)
  Receive Date: 20140428
  Receipt Date: 20140428
  Transmission Date: 20141212
  Serious: No
  Sender: FDA-Public Use
  Company Number: US-009507513-1404USA007197

PATIENT
  Sex: Male

DRUGS (2)
  1. ASMANEX TWISTHALER [Suspect]
     Indication: CHRONIC OBSTRUCTIVE PULMONARY DISEASE
     Dosage: 1-2 PUFFS, DAILY, PRN
     Route: 055
     Dates: start: 2010
  2. ASMANEX TWISTHALER [Suspect]
     Indication: ASTHMA

REACTIONS (3)
  - Drug dose omission [Unknown]
  - Drug administration error [Unknown]
  - Product quality issue [Unknown]
